FAERS Safety Report 12246122 (Version 1)
Quarter: 2016Q2

REPORT INFORMATION
  Report Type: Spontaneous
  Country: PL (occurrence: PL)
  Receive Date: 20160407
  Receipt Date: 20160407
  Transmission Date: 20160815
  Serious: Yes (Death)
  Sender: FDA-Public Use
  Company Number: PL-PFIZER INC-2016191838

PATIENT
  Age: 10 Year
  Sex: Male
  Weight: 18 kg

DRUGS (8)
  1. VORICONAZOLE. [Suspect]
     Active Substance: VORICONAZOLE
     Indication: PERITONITIS
  2. CEFTAZIDIME. [Concomitant]
     Active Substance: CEFTAZIDIME
     Indication: PERITONITIS
  3. FLUCONAZOLE. [Suspect]
     Active Substance: FLUCONAZOLE
     Indication: PERITONITIS
     Dosage: UNK
  4. AMPHOTERICIN B. [Suspect]
     Active Substance: AMPHOTERICIN B
     Indication: PERITONITIS
  5. AMIKACIN [Concomitant]
     Active Substance: AMIKACIN
     Indication: PERITONITIS
  6. POSACONAZOLE [Suspect]
     Active Substance: POSACONAZOLE
     Indication: PERITONITIS
  7. VANCOMYCIN [Concomitant]
     Active Substance: VANCOMYCIN
     Indication: PERITONITIS
  8. MEROPENEM. [Concomitant]
     Active Substance: MEROPENEM
     Indication: PERITONITIS

REACTIONS (1)
  - Drug ineffective [Fatal]
